FAERS Safety Report 8436115-0 (Version None)
Quarter: 2012Q2

REPORT INFORMATION
  Report Type: 
  Country: None (occurrence: None)
  Receive Date: 20120614
  Receipt Date: 20120608
  Transmission Date: 20120825
  Serious: Yes (Hospitalization)
  Sender: FDA-Public Use
  Company Number: FR-ROCHE-1077102

PATIENT
  Age: 19 Year
  Sex: Female
  Weight: 47 kg

DRUGS (13)
  1. IMURAN [Suspect]
     Indication: SYSTEMIC LUPUS ERYTHEMATOSUS
     Route: 048
     Dates: start: 20111013, end: 20120427
  2. PERINDOPRIL ERBUMINE [Concomitant]
  3. ZARZIO [Concomitant]
     Dates: start: 20120330
  4. DESOGESTREL AND ETHINYL ESTRADIOL [Concomitant]
  5. CALCIUM CARBONATE [Concomitant]
  6. MABTHERA [Suspect]
     Indication: SYSTEMIC LUPUS ERYTHEMATOSUS
     Route: 042
     Dates: start: 20110718, end: 20110726
  7. PLAQUENIL [Concomitant]
     Dates: start: 20120330
  8. PREDNISONE TAB [Concomitant]
  9. BACTRIM [Suspect]
     Indication: PRODUCT USED FOR UNKNOWN INDICATION
     Route: 048
     Dates: end: 20120427
  10. PLAQUENIL [Concomitant]
     Route: 048
  11. AMLODIPINE [Concomitant]
  12. ATACAND [Concomitant]
  13. LEUCOVORIN CALCIUM [Concomitant]

REACTIONS (1)
  - AGRANULOCYTOSIS [None]
